FAERS Safety Report 25415041 (Version 2)
Quarter: 2025Q3

REPORT INFORMATION
  Report Type: Report from Study
  Country: EU (occurrence: EU)
  Receive Date: 20250609
  Receipt Date: 20250710
  Transmission Date: 20251020
  Serious: Yes (Other)
  Sender: VERITY PHARMACEUTICALS INC.
  Company Number: EU-VER-202500050

PATIENT
  Sex: Male

DRUGS (3)
  1. TRIPTORELIN PAMOATE [Suspect]
     Active Substance: TRIPTORELIN PAMOATE
     Indication: Prostate cancer
     Dosage: 22.5 MG, 1X6 MONTHS; ZINR: 15533212
     Route: 030
     Dates: start: 20211213
  2. TRIPTORELIN PAMOATE [Suspect]
     Active Substance: TRIPTORELIN PAMOATE
     Indication: Prostate cancer
     Dosage: BATCH: 001673;  ?22.5 MG, 1X6 MONTHS; ZINR: 15533212
     Route: 030
     Dates: start: 20240605
  3. TRIPTORELIN PAMOATE [Suspect]
     Active Substance: TRIPTORELIN PAMOATE
     Indication: Prostate cancer
     Dosage: BATCH: 007634?22.5 MG, 1X6 MONTHS; ZINR: 15533212
     Route: 030
     Dates: start: 20241205

REACTIONS (1)
  - Terminal state [Unknown]
